FAERS Safety Report 10547740 (Version 1)
Quarter: 2014Q4

REPORT INFORMATION
  Report Type: Spontaneous
  Country: US (occurrence: None)
  Receive Date: 20141024
  Receipt Date: 20141024
  Transmission Date: 20150529
  Serious: Yes (Life-Threatening, Other)
  Sender: FDA-Public Use
  Company Number: None

PATIENT
  Age: 50 Year
  Sex: Female
  Weight: 101.15 kg

DRUGS (1)
  1. QSYMIA [Suspect]
     Active Substance: PHENTERMINE HYDROCHLORIDE\TOPIRAMATE
     Indication: WEIGHT DECREASED
     Dosage: 1 PILL ?ONCE DAILY?TAKEN BY MOUTH
     Route: 048
     Dates: start: 20140224, end: 20140714

REACTIONS (14)
  - Dehydration [None]
  - Chest pain [None]
  - Sleep disorder [None]
  - Speech disorder [None]
  - Memory impairment [None]
  - Depression [None]
  - Temperature intolerance [None]
  - Insomnia [None]
  - Renal impairment [None]
  - Apparent death [None]
  - Haemoglobin increased [None]
  - Urticaria [None]
  - Palpitations [None]
  - Pruritus [None]

NARRATIVE: CASE EVENT DATE: 20140224
